FAERS Safety Report 12475253 (Version 1)
Quarter: 2016Q2

REPORT INFORMATION
  Report Type: Spontaneous
  Country: JP (occurrence: JP)
  Receive Date: 20160617
  Receipt Date: 20160617
  Transmission Date: 20160815
  Serious: Yes (Death, Hospitalization)
  Sender: FDA-Public Use
  Company Number: JP-EISAI MEDICAL RESEARCH-EC-2016-017717

PATIENT
  Age: 75 Year
  Sex: Male

DRUGS (1)
  1. LENVIMA [Suspect]
     Active Substance: LENVATINIB
     Indication: FOLLICULAR THYROID CANCER
     Route: 048
     Dates: start: 20160517, end: 20160531

REACTIONS (2)
  - Decreased appetite [Unknown]
  - Haemoptysis [Fatal]

NARRATIVE: CASE EVENT DATE: 20160531
